FAERS Safety Report 9069471 (Version 2)
Quarter: 2013Q1

REPORT INFORMATION
  Report Type: Spontaneous
  Country: FR (occurrence: FR)
  Receive Date: 20130215
  Receipt Date: 20130322
  Transmission Date: 20140127
  Serious: Yes (Life-Threatening, Other)
  Sender: FDA-Public Use
  Company Number: FR-BRISTOL-MYERS SQUIBB COMPANY-17345869

PATIENT
  Age: 65 Year
  Sex: Male

DRUGS (2)
  1. HYDREA CAPS 500 MG [Suspect]
     Indication: ESSENTIAL THROMBOCYTHAEMIA
     Dosage: 29OCT2009:2 CAPSULES DAILY TO 2 CAPSULES DAILY ALTERNATED WITH 3 CAPSULES DAILY
     Route: 048
     Dates: start: 200009
  2. KARDEGIC [Suspect]

REACTIONS (4)
  - Bladder cancer [Unknown]
  - Splenomegaly [Unknown]
  - Haemoglobin increased [Unknown]
  - Haematocrit increased [Unknown]
